FAERS Safety Report 14108627 (Version 2)
Quarter: 2017Q4

REPORT INFORMATION
  Report Type: Report from Study
  Country: FR (occurrence: FR)
  Receive Date: 20171019
  Receipt Date: 20171026
  Transmission Date: 20180321
  Serious: Yes (Congenital Anomaly, Other)
  Sender: FDA-Public Use
  Company Number: FR-GILEAD-2017-0299221

PATIENT
  Sex: Male

DRUGS (3)
  1. EMTRICITABINE/TENOFOVIR DISOPROXIL FUMARATE [Suspect]
     Active Substance: EMTRICITABINE\TENOFOVIR DISOPROXIL FUMARATE
     Indication: HIV INFECTION
     Dosage: UNK
     Route: 064
     Dates: start: 20121019, end: 20130402
  2. RITONAVIR. [Suspect]
     Active Substance: RITONAVIR
     Indication: HIV INFECTION
     Dosage: UNK
     Route: 064
     Dates: start: 20121019, end: 20130402
  3. ATAZANAVIR SULFATE. [Suspect]
     Active Substance: ATAZANAVIR SULFATE
     Indication: HIV INFECTION
     Dosage: UNK
     Route: 064
     Dates: start: 20121019, end: 20130402

REACTIONS (11)
  - Ventricular septal defect [Not Recovered/Not Resolved]
  - Anomalous pulmonary venous connection [Not Recovered/Not Resolved]
  - Right aortic arch [Not Recovered/Not Resolved]
  - Heterotaxia [Not Recovered/Not Resolved]
  - Pulmonary malformation [Not Recovered/Not Resolved]
  - Foetal exposure during pregnancy [Recovered/Resolved]
  - Persistent left superior vena cava [Not Recovered/Not Resolved]
  - Single umbilical artery [Not Recovered/Not Resolved]
  - Transposition of the great vessels [Not Recovered/Not Resolved]
  - Ventricular hypoplasia [Not Recovered/Not Resolved]
  - Vascular malformation [Not Recovered/Not Resolved]

NARRATIVE: CASE EVENT DATE: 20121019
